FAERS Safety Report 5066868-3 (Version None)
Quarter: 2006Q3

REPORT INFORMATION
  Report Type: 
  Country: None (occurrence: None)
  Receive Date: 20060726
  Receipt Date: 20060720
  Transmission Date: 20061208
  Serious: Yes (Other)
  Sender: FDA-Public Use
  Company Number: FR-2005-019408

PATIENT
  Age: 42 Year
  Sex: Female
  Weight: 56 kg

DRUGS (6)
  1. MIRENA [Suspect]
     Indication: CONTRACEPTION
     Dosage: 20 UG/DAY, CONT, INTRA-UTERINE
     Route: 015
     Dates: start: 20021017, end: 20060113
  2. IMURAN [Concomitant]
  3. LEVOTHYROXINE SODIUM [Concomitant]
  4. DELURSAN (URSODEOXYCHOLIC ACID) [Concomitant]
  5. OROCAL D(3) [Concomitant]
  6. PENTASA [Concomitant]

REACTIONS (3)
  - CHOLESTASIS [None]
  - CONDITION AGGRAVATED [None]
  - WEIGHT DECREASED [None]
